FAERS Safety Report 9695423 (Version 3)
Quarter: 2013Q4

REPORT INFORMATION
  Report Type: Spontaneous
  Country: IT (occurrence: IT)
  Receive Date: 20131119
  Receipt Date: 20131211
  Transmission Date: 20140711
  Serious: Yes (Death, Hospitalization)
  Sender: FDA-Public Use
  Company Number: PHHY2013IT131135

PATIENT
  Age: 73 Year
  Sex: Male

DRUGS (1)
  1. SIGNIFOR [Suspect]
     Indication: PITUITARY-DEPENDENT CUSHING^S SYNDROME
     Dosage: 0.6 UG, BID
     Dates: start: 20131105, end: 20131109

REACTIONS (4)
  - General physical health deterioration [Fatal]
  - Cerebrovascular accident [Fatal]
  - Nausea [Unknown]
  - Vomiting [Unknown]
